FAERS Safety Report 7549672-3 (Version None)
Quarter: 2011Q2

REPORT INFORMATION
  Report Type: 
  Country: None (occurrence: None)
  Receive Date: 20110615
  Receipt Date: 20100901
  Transmission Date: 20111010
  Serious: No
  Sender: FDA-Public Use
  Company Number: US-BRISTOL-MYERS SQUIBB COMPANY-15267123

PATIENT
  Sex: Male

DRUGS (2)
  1. MONOPRIL [Suspect]
  2. FOSINOPRIL SODIUM [Suspect]

REACTIONS (1)
  - DRUG INTOLERANCE [None]
